FAERS Safety Report 5876272-3 (Version None)
Quarter: 2008Q3

REPORT INFORMATION
  Report Type: 
  Country: None (occurrence: None)
  Receive Date: 20080908
  Receipt Date: 20080908
  Transmission Date: 20090109
  Serious: Yes (Life-Threatening, Hospitalization)
  Sender: FDA-Public Use
  Company Number: None

PATIENT
  Age: 70 Year
  Sex: Female

DRUGS (1)
  1. IOPANOIC ACID [Suspect]
     Dosage: IV DRIP  1 DOSE
     Route: 041

REACTIONS (4)
  - ANAPHYLACTIC REACTION [None]
  - CARDIO-RESPIRATORY ARREST [None]
  - CONTRAST MEDIA REACTION [None]
  - DYSPNOEA [None]
